FAERS Safety Report 5759446-1 (Version None)
Quarter: 2008Q2

REPORT INFORMATION
  Report Type: 
  Country: None (occurrence: None)
  Receive Date: 20080605
  Receipt Date: 20080505
  Transmission Date: 20081010
  Serious: No
  Sender: FDA-Public Use
  Company Number: US-BAYER-200715004NA

PATIENT
  Age: 18 Year
  Sex: Female
  Weight: 86 kg

DRUGS (1)
  1. MIRENA [Suspect]
     Indication: CONTRACEPTION
     Route: 015
     Dates: start: 20070101

REACTIONS (5)
  - ABDOMINAL PAIN LOWER [None]
  - BACK PAIN [None]
  - HYPOAESTHESIA [None]
  - RASH [None]
  - VAGINAL DISCHARGE [None]
